FAERS Safety Report 21155680 (Version 1)
Quarter: 2022Q3

REPORT INFORMATION
  Report Type: Report from Study
  Country: MX (occurrence: MX)
  Receive Date: 20220801
  Receipt Date: 20220801
  Transmission Date: 20221026
  Serious: Yes (Other)
  Sender: FDA-Public Use
  Company Number: MX-NOVARTISPH-NVSC2022MX055785

PATIENT
  Sex: Male

DRUGS (1)
  1. TASIGNA [Suspect]
     Active Substance: NILOTINIB
     Indication: Chronic myeloid leukaemia
     Dosage: UNK
     Route: 048

REACTIONS (16)
  - Suicidal ideation [Unknown]
  - Abdominal pain upper [Unknown]
  - Food allergy [Unknown]
  - Stress [Unknown]
  - Illness [Unknown]
  - Mood altered [Unknown]
  - Feeling abnormal [Unknown]
  - Crying [Unknown]
  - Contusion [Unknown]
  - Hyperhidrosis [Unknown]
  - Hypertension [Unknown]
  - Pain [Unknown]
  - Fatigue [Unknown]
  - Weight decreased [Unknown]
  - Insomnia [Unknown]
  - Product dose omission issue [Unknown]
